FAERS Safety Report 22228771 (Version 1)
Quarter: 2023Q2

REPORT INFORMATION
  Report Type: Spontaneous
  Country: IT (occurrence: IT)
  Receive Date: 20230419
  Receipt Date: 20230419
  Transmission Date: 20230722
  Serious: Yes (Hospitalization, Other)
  Sender: FDA-Public Use
  Company Number: IT-MLMSERVICE-20230404-4197543-1

PATIENT
  Age: 61 Year
  Sex: Female
  Weight: 70 kg

DRUGS (1)
  1. TACROLIMUS [Suspect]
     Active Substance: TACROLIMUS
     Indication: Product used for unknown indication
     Dosage: 0.032 MG/KG
     Route: 048

REACTIONS (5)
  - Decorticate posture [Unknown]
  - Cerebral hypoperfusion [Recovered/Resolved]
  - Pyramidal tract syndrome [Unknown]
  - Locked-in syndrome [Unknown]
  - Dysarthria [Recovered/Resolved]
